FAERS Safety Report 12381910 (Version 1)
Quarter: 2016Q2

REPORT INFORMATION
  Report Type: Spontaneous
  Country: US (occurrence: None)
  Receive Date: 20160517
  Receipt Date: 20160517
  Transmission Date: 20160815
  Serious: Yes (Hospitalization)
  Sender: FDA-Public Use
  Company Number: None

PATIENT
  Age: 70 Year
  Sex: Male
  Weight: 82.1 kg

DRUGS (1)
  1. LEVAQUIN [Suspect]
     Active Substance: LEVOFLOXACIN
     Indication: URINARY TRACT INFECTION

REACTIONS (6)
  - Lip swelling [None]
  - Swelling face [None]
  - Eye pruritus [None]
  - Ulcer [None]
  - Foreign body sensation in eyes [None]
  - Vision blurred [None]

NARRATIVE: CASE EVENT DATE: 20160316
